FAERS Safety Report 6506204-6 (Version None)
Quarter: 2009Q4

REPORT INFORMATION
  Report Type: 
  Country: None (occurrence: None)
  Receive Date: 20091218
  Receipt Date: 20091215
  Transmission Date: 20100525
  Serious: Yes (Other)
  Sender: FDA-Public Use
  Company Number: FR-PFIZER INC-2009265391

PATIENT
  Age: 40 Year
  Sex: Female

DRUGS (1)
  1. CHAMPIX [Suspect]
     Dosage: UNK
     Dates: end: 20090601

REACTIONS (4)
  - HEADACHE [None]
  - MEMORY IMPAIRMENT [None]
  - NIGHTMARE [None]
  - SPEECH DISORDER [None]
